FAERS Safety Report 16940231 (Version 2)
Quarter: 2019Q4

REPORT INFORMATION
  Report Type: Report from Study
  Country: US (occurrence: US)
  Receive Date: 20191021
  Receipt Date: 20191108
  Transmission Date: 20200122
  Serious: Yes (Death, Hospitalization, Other)
  Sender: FDA-Public Use
  Company Number: US-ASTELLAS-2019US031990

PATIENT
  Age: 91 Year
  Sex: Male

DRUGS (2)
  1. ENZALUTAMIDE [Suspect]
     Active Substance: ENZALUTAMIDE
     Indication: HORMONE-REFRACTORY PROSTATE CANCER
     Dosage: UNK UNK, UNKNOWN FREQ.
     Route: 048
     Dates: start: 201707, end: 201712
  2. ENZALUTAMIDE [Suspect]
     Active Substance: ENZALUTAMIDE
     Route: 048
     Dates: start: 201908, end: 20191012

REACTIONS (12)
  - Vomiting [Unknown]
  - Erythema [Unknown]
  - Death [Fatal]
  - Muscular weakness [Unknown]
  - Product use complaint [Unknown]
  - Myocardial infarction [Unknown]
  - Heart rate increased [Unknown]
  - Foaming at mouth [Unknown]
  - Foreign body in respiratory tract [Unknown]
  - Malignant neoplasm progression [Unknown]
  - Cough [Unknown]
  - Wheezing [Unknown]

NARRATIVE: CASE EVENT DATE: 201910
